FAERS Safety Report 7920350-1 (Version None)
Quarter: 2011Q4

REPORT INFORMATION
  Report Type: 
  Country: None (occurrence: None)
  Receive Date: 20111117
  Receipt Date: 20111107
  Transmission Date: 20120403
  Serious: Yes (Other)
  Sender: FDA-Public Use
  Company Number: CA-ELI_LILLY_AND_COMPANY-CA201111001917

PATIENT
  Sex: Female

DRUGS (11)
  1. ZYPREXA [Suspect]
     Indication: BIPOLAR DISORDER
     Dosage: 5 MG, EACH EVENING
     Dates: start: 20030402
  2. ZOPICLONE [Concomitant]
  3. SEROQUEL [Concomitant]
  4. PAXIL [Concomitant]
  5. TOPAMAX [Concomitant]
  6. VALPROATE SODIUM [Concomitant]
  7. TRAZODONE HCL [Concomitant]
  8. CLONAZEPAM [Concomitant]
  9. ZYPREXA [Suspect]
     Dosage: 2.5 MG, QD
  10. NORTRIPTYLINE HCL [Concomitant]
  11. LORAZEPAM [Concomitant]

REACTIONS (10)
  - WEIGHT INCREASED [None]
  - PAIN IN EXTREMITY [None]
  - HYPERTENSION [None]
  - VULVOVAGINAL MYCOTIC INFECTION [None]
  - URINARY TRACT INFECTION [None]
  - HYPERCHOLESTEROLAEMIA [None]
  - SLEEP APNOEA SYNDROME [None]
  - UPPER RESPIRATORY TRACT INFECTION [None]
  - DIABETES MELLITUS [None]
  - BRONCHITIS [None]
